FAERS Safety Report 9637424 (Version 2)
Quarter: 2013Q4

REPORT INFORMATION
  Report Type: Report from Study
  Country: RU (occurrence: RU)
  Receive Date: 20131022
  Receipt Date: 20131022
  Transmission Date: 20140711
  Serious: Yes (Other)
  Sender: FDA-Public Use
  Company Number: RU-ROCHE-1291949

PATIENT
  Age: 53 Year
  Sex: Male

DRUGS (6)
  1. HERCEPTIN [Suspect]
     Indication: GASTRIC CANCER
     Route: 065
     Dates: start: 20130902
  2. XELODA [Suspect]
     Indication: GASTRIC CANCER
     Dosage: DAY 14
     Route: 065
     Dates: start: 20131021
  3. 5-FU [Concomitant]
     Indication: GASTRIC CANCER
     Dosage: 800 MG IV THEN 1200 MG IV DRIPS ON 1-2 DAYS
     Route: 042
     Dates: start: 20130902, end: 20131021
  4. LEUCOVORIN [Concomitant]
     Indication: GASTRIC CANCER
     Dosage: 2 HOURS 1-2 DAYS
     Route: 041
     Dates: start: 20130902, end: 20131021
  5. OXALIPLATIN [Concomitant]
     Indication: GASTRIC CANCER
     Dosage: 2 HOURS ON THE 1ST DAY
     Route: 041
     Dates: start: 20130902, end: 20131021
  6. CISPLATINE [Concomitant]
     Indication: ASCITES
     Route: 033

REACTIONS (2)
  - Disease progression [Not Recovered/Not Resolved]
  - Ascites [Unknown]
